FAERS Safety Report 7990615-6 (Version None)
Quarter: 2011Q4

REPORT INFORMATION
  Report Type: 
  Country: None (occurrence: None)
  Receive Date: 20111219
  Receipt Date: 20110518
  Transmission Date: 20120403
  Serious: Yes (Other)
  Sender: FDA-Public Use
  Company Number: US-ASTRAZENECA-2011SE09420

PATIENT
  Age: 53 Year
  Sex: Male

DRUGS (4)
  1. MINOCIN [Concomitant]
  2. IBUPROFEN [Concomitant]
  3. CRESTOR [Suspect]
     Route: 048
     Dates: start: 20090801, end: 20100712
  4. ZIAC [Concomitant]

REACTIONS (8)
  - MUSCLE TWITCHING [None]
  - ASTHENIA [None]
  - RHABDOMYOLYSIS [None]
  - FATIGUE [None]
  - MYOPATHY [None]
  - RADICULOPATHY [None]
  - MYALGIA [None]
  - BLOOD CREATINE PHOSPHOKINASE INCREASED [None]
